FAERS Safety Report 24990815 (Version 1)
Quarter: 2025Q1

REPORT INFORMATION
  Report Type: Spontaneous
  Country: BR (occurrence: BR)
  Receive Date: 20250220
  Receipt Date: 20250220
  Transmission Date: 20250409
  Serious: Yes (Other)
  Sender: PFIZER
  Company Number: BR-PFIZER INC-PV202500019879

PATIENT
  Age: 40 Year
  Sex: Female

DRUGS (2)
  1. TALIGLUCERASE ALFA [Suspect]
     Active Substance: TALIGLUCERASE ALFA
     Indication: Gaucher^s disease
     Route: 042
     Dates: start: 20240528
  2. PREGABALIN [Concomitant]
     Active Substance: PREGABALIN

REACTIONS (4)
  - Throat irritation [Unknown]
  - Pyrexia [Unknown]
  - Cough [Unknown]
  - Upper respiratory tract infection [Unknown]

NARRATIVE: CASE EVENT DATE: 20250129
